FAERS Safety Report 4451179-7 (Version None)
Quarter: 2004Q3

REPORT INFORMATION
  Report Type: 
  Country: None (occurrence: None)
  Receive Date: 20040915
  Receipt Date: 20040915
  Transmission Date: 20050211
  Serious: Yes (Hospitalization)
  Sender: FDA-Public Use
  Company Number: None

PATIENT
  Age: 57 Year
  Sex: Male
  Weight: 63.05 kg

DRUGS (3)
  1. CISPLATIN [Suspect]
     Indication: LARYNGEAL CANCER
     Dosage: 180 MG / Q 21 DAYS / IV X 3 DOSES
     Route: 042
     Dates: start: 20040720
  2. CISPLATIN [Suspect]
     Indication: LARYNGEAL CANCER
     Dosage: 180 MG / Q 21 DAYS / IV X 3 DOSES
     Route: 042
     Dates: start: 20040819
  3. CISPLATIN [Suspect]
     Indication: LARYNGEAL CANCER
     Dosage: 180 MG / Q 21 DAYS / IV X 3 DOSES
     Route: 042
     Dates: start: 20040909

REACTIONS (2)
  - DEHYDRATION [None]
  - RENAL FAILURE [None]
